FAERS Safety Report 9101801 (Version 1)
Quarter: 2013Q1

REPORT INFORMATION
  Report Type: Spontaneous
  Country: US (occurrence: None)
  Receive Date: 20130220
  Receipt Date: 20130220
  Transmission Date: 20140127
  Serious: Yes (Other)
  Sender: FDA-Public Use
  Company Number: None

PATIENT
  Sex: Female

DRUGS (1)
  1. METHOTREXATE [Suspect]
     Dosage: 10MG  ONCE A WEEK  SUBQ?FROM ABOUT 9 MONTHS AGO TO PRESENT
     Route: 058

REACTIONS (3)
  - Nausea [None]
  - Abdominal discomfort [None]
  - Neuralgia [None]
